FAERS Safety Report 6556770-X (Version None)
Quarter: 2010Q1

REPORT INFORMATION
  Report Type: 
  Country: None (occurrence: None)
  Receive Date: 20100128
  Receipt Date: 20100122
  Transmission Date: 20100710
  Serious: Yes (Hospitalization)
  Sender: FDA-Public Use
  Company Number: JP-JNJFOC-20100110354

PATIENT
  Age: 8 Decade
  Sex: Male

DRUGS (1)
  1. ITRACONAZOLE [Suspect]
     Indication: FUNGAL INFECTION
     Route: 048

REACTIONS (1)
  - INTERSTITIAL LUNG DISEASE [None]
